FAERS Safety Report 4359274-8 (Version None)
Quarter: 2004Q2

REPORT INFORMATION
  Report Type: 
  Country: None (occurrence: None)
  Receive Date: 20040512
  Receipt Date: 20040505
  Transmission Date: 20050107
  Serious: Yes (Hospitalization)
  Sender: FDA-Public Use
  Company Number: 2004211856US

PATIENT
  Age: 47 Year
  Sex: Female

DRUGS (3)
  1. CELEBREX [Suspect]
     Dosage: 200 MG, BID
  2. PHENOBARBITAL TAB [Concomitant]
  3. PHENYTOIN [Concomitant]

REACTIONS (1)
  - CONVULSION [None]
